FAERS Safety Report 5918747-4 (Version None)
Quarter: 2008Q4

REPORT INFORMATION
  Report Type: 
  Country: None (occurrence: None)
  Receive Date: 20081015
  Receipt Date: 20080730
  Transmission Date: 20090506
  Serious: No
  Sender: FDA-Public Use
  Company Number: US-ASTRAZENECA-2008UW14937

PATIENT
  Age: 62 Year
  Sex: Female

DRUGS (4)
  1. SYMBICORT [Suspect]
     Route: 055
  2. XOPENEX [Concomitant]
  3. DUONEB NEBULIZER [Concomitant]
  4. PULMICORT NEBULIZER [Concomitant]
     Route: 055

REACTIONS (1)
  - THERMAL BURN [None]
